FAERS Safety Report 4401164-6 (Version None)
Quarter: 2004Q3

REPORT INFORMATION
  Report Type: 
  Country: None (occurrence: None)
  Receive Date: 20040907
  Receipt Date: 20031201
  Transmission Date: 20050211
  Serious: Yes (Hospitalization)
  Sender: FDA-Public Use
  Company Number: US-BRISTOL-MYERS SQUIBB COMPANY-12445904

PATIENT
  Age: 75 Year
  Sex: Female
  Weight: 66 kg

DRUGS (2)
  1. COUMADIN [Suspect]
     Indication: HEART VALVE REPLACEMENT
     Dosage: PAST FEW MONTH'S DOSE: 5 MG 6 D/WK + 2.5 MG FOR 1D/WK. POST-DISCHARGE 10 MG TO 5 MG/D.
     Route: 048
  2. SYNTHROID [Concomitant]
     Dosage: TAKEN FOR SEVERAL YEARS. DOSE 0.125 MG.

REACTIONS (2)
  - HAEMATOMA [None]
  - INTERNATIONAL NORMALISED RATIO ABNORMAL [None]
